FAERS Safety Report 4846713-9 (Version None)
Quarter: 2005Q4

REPORT INFORMATION
  Report Type: 
  Country: None (occurrence: None)
  Receive Date: 20051206
  Receipt Date: 20051130
  Transmission Date: 20060501
  Serious: Yes (Hospitalization, Other)
  Sender: FDA-Public Use
  Company Number: US-MERCK-0512USA00358

PATIENT
  Sex: Male

DRUGS (7)
  1. VIOXX [Suspect]
     Indication: RHEUMATOID ARTHRITIS
     Route: 048
  2. INDOCIN [Concomitant]
     Route: 065
  3. PREDNISONE [Concomitant]
     Route: 065
  4. ALLOPURINOL [Concomitant]
     Route: 065
  5. COLCHICINE [Concomitant]
     Route: 065
  6. VERAPAMIL [Concomitant]
     Route: 065
  7. ATACAND [Concomitant]
     Route: 065

REACTIONS (5)
  - ARTHRITIS [None]
  - CARDIAC FAILURE CONGESTIVE [None]
  - CEREBROVASCULAR ACCIDENT [None]
  - DYSPNOEA [None]
  - RENAL FAILURE [None]
